FAERS Safety Report 6540207-0 (Version None)
Quarter: 2010Q1

REPORT INFORMATION
  Report Type: 
  Country: None (occurrence: None)
  Receive Date: 20100112
  Receipt Date: 20100106
  Transmission Date: 20100710
  Serious: Yes (Death)
  Sender: FDA-Public Use
  Company Number: 2010JP000166

PATIENT
  Age: 2 Year
  Sex: Male

DRUGS (1)
  1. PROGRAF [Suspect]
     Indication: LIVER TRANSPLANT

REACTIONS (7)
  - BURKITT'S LYMPHOMA [None]
  - CONSTIPATION [None]
  - DIARRHOEA [None]
  - EPSTEIN-BARR VIRUS ASSOCIATED LYMPHOPROLIFERATIVE DISORDER [None]
  - INTESTINAL PERFORATION [None]
  - PYREXIA [None]
  - VOMITING [None]
